FAERS Safety Report 9934434 (Version 1)
Quarter: 2014Q1

REPORT INFORMATION
  Report Type: Spontaneous
  Country: US (occurrence: US)
  Receive Date: 20140228
  Receipt Date: 20140228
  Transmission Date: 20141002
  Serious: No
  Sender: FDA-Public Use
  Company Number: US-BAYER-2014-031084

PATIENT
  Age: 39 Year
  Sex: Female
  Weight: 113 kg

DRUGS (4)
  1. ALEVE SMOOTH GELS [Suspect]
     Indication: BACK PAIN
     Dosage: 2 DF, BID
     Route: 048
     Dates: start: 2013
  2. ALEVE SMOOTH GELS [Suspect]
     Indication: NEURALGIA
  3. ALEVE SMOOTH GELS [Suspect]
     Indication: INFLAMMATION
  4. HYDROCODONE [Concomitant]

REACTIONS (3)
  - Incorrect drug administration duration [None]
  - Off label use [None]
  - Extra dose administered [None]
